FAERS Safety Report 8029238-1 (Version None)
Quarter: 2012Q1

REPORT INFORMATION
  Report Type: 
  Country: None (occurrence: None)
  Receive Date: 20120106
  Receipt Date: 20120105
  Transmission Date: 20120608
  Serious: Yes (Life-Threatening, Other)
  Sender: FDA-Public Use
  Company Number: PHEH2011US07613

PATIENT
  Sex: Female
  Weight: 40.823 kg

DRUGS (12)
  1. DIVIGEL [Concomitant]
     Dosage: 1 MG, UNK
  2. REBIF [Concomitant]
     Dosage: 3 UKN (SHOTS), QD
  3. ZANAFLEX [Concomitant]
  4. VITAMIN D [Concomitant]
  5. DEXLANSOPRAZOLE (DEXILANT) [Concomitant]
     Indication: GASTROOESOPHAGEAL REFLUX DISEASE
  6. AMOXICILLIN AND CLAVULANATE POTASSIUM [Concomitant]
     Indication: INFECTION
     Dosage: 4 DF (875/125MG), QD
  7. CLIMARA [Concomitant]
     Dosage: 0.1 MG, UNK
  8. ESTRADIOL [Concomitant]
  9. RECLAST [Suspect]
     Indication: OSTEOPOROSIS
     Route: 042
     Dates: start: 20091031
  10. CALCIUM ACETATE [Concomitant]
  11. VIVENE [Concomitant]
     Dosage: 0.1 MG, UNK
  12. LYRICA [Concomitant]
     Indication: MULTIPLE SCLEROSIS

REACTIONS (13)
  - TOOTHACHE [None]
  - MUSCULOSKELETAL PAIN [None]
  - HORMONE LEVEL ABNORMAL [None]
  - NIGHT SWEATS [None]
  - FEELING ABNORMAL [None]
  - JAW DISORDER [None]
  - ARTHRALGIA [None]
  - OSTEOMYELITIS [None]
  - CRYING [None]
  - PAIN [None]
  - MOOD ALTERED [None]
  - HAIR GROWTH ABNORMAL [None]
  - INFLUENZA LIKE ILLNESS [None]
